FAERS Safety Report 5198897-3 (Version None)
Quarter: 2006Q4

REPORT INFORMATION
  Report Type: 
  Country: None (occurrence: None)
  Receive Date: 20060921
  Receipt Date: 20060116
  Transmission Date: 20070319
  Serious: Yes (Other)
  Sender: FDA-Public Use
  Company Number: 2006008509

PATIENT
  Sex: Female
  Weight: 79.3795 kg

DRUGS (8)
  1. ZYRTEC [Suspect]
     Indication: SINUS DISORDER
  2. ZYRTEC-D 12 HOUR [Suspect]
     Indication: SINUS DISORDER
     Dates: start: 20060101
  3. CLARITIN-D [Suspect]
     Indication: SINUS DISORDER
  4. PROVIGIL [Concomitant]
  5. ALL OTHER THERAPEUTIC PRODUCTS (ALL OTHER THERAPEUTIC PRODUCTS) [Concomitant]
  6. SEROQUEL [Concomitant]
  7. WELLBUTRIN SR [Concomitant]
  8. DIAZEPAM [Concomitant]

REACTIONS (3)
  - NASAL ODOUR [None]
  - NASAL POLYPS [None]
  - RESPIRATORY DISORDER [None]
